FAERS Safety Report 21570588 (Version 2)
Quarter: 2022Q4

REPORT INFORMATION
  Report Type: Spontaneous
  Country: JP (occurrence: JP)
  Receive Date: 20221109
  Receipt Date: 20221114
  Transmission Date: 20230113
  Serious: Yes (Hospitalization, Other)
  Sender: FDA-Public Use
  Company Number: JP-ONO-2022JP025943

PATIENT
  Age: 68 Year
  Sex: Female
  Weight: 37.8 kg

DRUGS (28)
  1. OPDIVO [Suspect]
     Active Substance: NIVOLUMAB
     Indication: Gastric cancer
     Dosage: 240 MG
     Route: 041
     Dates: start: 20220810, end: 20220810
  2. OPDIVO [Suspect]
     Active Substance: NIVOLUMAB
  3. METOCLOPRAMIDE HYDROCHLORIDE [Concomitant]
     Active Substance: METOCLOPRAMIDE HYDROCHLORIDE
     Dosage: UNK
     Route: 065
  4. LANSOPRAZOLE [Concomitant]
     Active Substance: LANSOPRAZOLE
     Dosage: UNK
     Route: 065
  5. LANSOPRAZOLE [Concomitant]
     Active Substance: LANSOPRAZOLE
     Indication: Product used for unknown indication
     Dosage: UNK
     Route: 065
  6. SULFAMETHOXAZOLE\TRIMETHOPRIM [Concomitant]
     Active Substance: SULFAMETHOXAZOLE\TRIMETHOPRIM
     Dosage: UNK
     Route: 065
     Dates: end: 202209
  7. ZICTHORU [Concomitant]
     Indication: Product used for unknown indication
     Dosage: UNK, TAPE (INCLUDING POULTICE)
     Route: 062
  8. PENTASA [Concomitant]
     Active Substance: MESALAMINE
     Indication: Product used for unknown indication
     Dosage: UNK, GRAIN
     Route: 048
  9. DAYVIGO [Concomitant]
     Active Substance: LEMBOREXANT
     Indication: Product used for unknown indication
     Dosage: UNK
     Route: 065
  10. HYDROMORPHONE HYDROCHLORIDE [Concomitant]
     Active Substance: HYDROMORPHONE HYDROCHLORIDE
     Indication: Product used for unknown indication
     Dosage: UNK
     Route: 065
  11. TRAZODONE HYDROCHLORIDE [Concomitant]
     Active Substance: TRAZODONE HYDROCHLORIDE
     Indication: Product used for unknown indication
     Dosage: UNK
     Route: 065
  12. PREDONINE [Concomitant]
     Active Substance: PREDNISOLONE
     Indication: Product used for unknown indication
     Dosage: UNK
     Route: 065
  13. ACETAMINOPHEN [Concomitant]
     Active Substance: ACETAMINOPHEN
     Indication: Product used for unknown indication
     Dosage: UNK
     Route: 065
  14. HYDROMORPHONE HYDROCHLORIDE [Concomitant]
     Active Substance: HYDROMORPHONE HYDROCHLORIDE
     Indication: Product used for unknown indication
     Dosage: UNK
     Route: 065
  15. LEVOLEUCOVORIN CALCIUM [Concomitant]
     Active Substance: LEVOLEUCOVORIN CALCIUM
     Indication: Gastric cancer
     Dosage: UNK
     Route: 065
     Dates: start: 20220810
  16. OXALIPLATIN [Concomitant]
     Active Substance: OXALIPLATIN
     Indication: Gastric cancer
     Dosage: UNK
     Route: 065
     Dates: start: 20220810
  17. FLUOROURACIL [Concomitant]
     Active Substance: FLUOROURACIL
     Indication: Gastric cancer
     Dosage: UNK
     Route: 065
     Dates: start: 20220810
  18. AMINO ACIDS\DEXTROSE\ELECTROLYTES NOS\MINERALS\VITAMINS [Concomitant]
     Active Substance: AMINO ACIDS\DEXTROSE\ELECTROLYTES NOS\MINERALS\VITAMINS
     Indication: Product used for unknown indication
     Dosage: UNK
     Route: 065
  19. GRANISETRON [Concomitant]
     Active Substance: GRANISETRON
     Indication: Product used for unknown indication
     Dosage: UNK
     Route: 041
  20. GRANISETRON [Concomitant]
     Active Substance: GRANISETRON
     Dosage: UNK
     Route: 048
  21. DEXAMETHASONE SODIUM PHOSPHATE [Concomitant]
     Active Substance: DEXAMETHASONE SODIUM PHOSPHATE
     Indication: Product used for unknown indication
     Dosage: UNK
     Route: 065
  22. ACETAMINOPHEN [Concomitant]
     Active Substance: ACETAMINOPHEN
     Indication: Product used for unknown indication
     Dosage: UNK
     Route: 065
  23. METOCLOPRAMIDE HYDROCHLORIDE [Concomitant]
     Active Substance: METOCLOPRAMIDE HYDROCHLORIDE
     Indication: Product used for unknown indication
     Dosage: UNK
     Route: 065
  24. HYDROMORPHONE HYDROCHLORIDE [Concomitant]
     Active Substance: HYDROMORPHONE HYDROCHLORIDE
     Indication: Product used for unknown indication
     Dosage: UNK
     Route: 065
  25. SOYBEAN OIL [Concomitant]
     Active Substance: SOYBEAN OIL
     Indication: Product used for unknown indication
     Dosage: UNK
     Route: 065
  26. CHLORPROMAZINE [Concomitant]
     Active Substance: CHLORPROMAZINE
     Indication: Product used for unknown indication
     Dosage: UNK
     Route: 065
  27. SYMPROIC [Concomitant]
     Active Substance: NALDEMEDINE
     Indication: Product used for unknown indication
     Dosage: UNK
     Route: 065
  28. LAGNOS NF [Concomitant]
     Indication: Product used for unknown indication
     Dosage: UNK
     Route: 048

REACTIONS (2)
  - Immune-mediated enterocolitis [Recovered/Resolved]
  - Immune-mediated hepatitis [Not Recovered/Not Resolved]

NARRATIVE: CASE EVENT DATE: 20220822
